FAERS Safety Report 21448262 (Version 6)
Quarter: 2023Q2

REPORT INFORMATION
  Report Type: Report from Study
  Country: US (occurrence: US)
  Receive Date: 20221012
  Receipt Date: 20230409
  Transmission Date: 20230722
  Serious: Yes (Other)
  Sender: FDA-Public Use
  Company Number: US-ALXN-A202208897AA

PATIENT
  Sex: Male

DRUGS (5)
  1. TACROLIMUS [Suspect]
     Active Substance: TACROLIMUS
     Indication: Eyelid ptosis
     Dosage: 3 MG, UNK
     Route: 065
     Dates: start: 20221028
  2. TACROLIMUS [Suspect]
     Active Substance: TACROLIMUS
     Dosage: 3 MG, UNK
     Route: 065
     Dates: start: 20221105
  3. TACROLIMUS [Suspect]
     Active Substance: TACROLIMUS
     Indication: Headache
     Dosage: 4 MG, UNK
     Route: 065
     Dates: start: 20221104
  4. ULTOMIRIS [Suspect]
     Active Substance: RAVULIZUMAB-CWVZ
     Indication: Myasthenia gravis
     Dosage: UNK
     Route: 065
     Dates: start: 20220726
  5. TRULICITY [Concomitant]
     Active Substance: DULAGLUTIDE
     Indication: Product used for unknown indication
     Dosage: UNK
     Route: 065

REACTIONS (26)
  - Ophthalmoplegia [Unknown]
  - Choking [Not Recovered/Not Resolved]
  - Haematochezia [Unknown]
  - Infusion site bruising [Unknown]
  - Appetite disorder [Unknown]
  - Balance disorder [Not Recovered/Not Resolved]
  - Eyelid ptosis [Not Recovered/Not Resolved]
  - Sleep disorder [Unknown]
  - Cough [Unknown]
  - Dyspnoea [Unknown]
  - Musculoskeletal discomfort [Unknown]
  - Infusion site pain [Unknown]
  - Limb discomfort [Unknown]
  - Blood glucose increased [Unknown]
  - Blood pressure increased [Unknown]
  - Fall [Unknown]
  - Off label use [Unknown]
  - Malaise [Unknown]
  - Localised infection [Unknown]
  - Tremor [Unknown]
  - Joint lock [Unknown]
  - Peripheral coldness [Unknown]
  - Nausea [Unknown]
  - Fatigue [Unknown]
  - Headache [Not Recovered/Not Resolved]
  - Dizziness [Not Recovered/Not Resolved]

NARRATIVE: CASE EVENT DATE: 20220904
